FAERS Safety Report 17429264 (Version 1)
Quarter: 2020Q1

REPORT INFORMATION
  Report Type: Spontaneous
  Country: FR (occurrence: FR)
  Receive Date: 20200218
  Receipt Date: 20200218
  Transmission Date: 20200409
  Serious: Yes (Hospitalization)
  Sender: FDA-Public Use
  Company Number: FR-TEVA-2020-FR-1187488

PATIENT
  Age: 27 Year
  Sex: Male

DRUGS (3)
  1. SILDENAFIL. [Suspect]
     Active Substance: SILDENAFIL
     Indication: PRODUCT USED FOR UNKNOWN INDICATION
     Route: 048
  2. GAMMA HYDROXYBUTYRIQUE (ACIDE) [Suspect]
     Active Substance: 4-HYDROXYBUTANOIC ACID
     Route: 048
     Dates: start: 20200118, end: 20200118
  3. CATHINONE [Suspect]
     Active Substance: CATHINONE
     Dates: end: 20200118

REACTIONS (2)
  - Agitation [Recovered/Resolved]
  - Drug dependence [Unknown]

NARRATIVE: CASE EVENT DATE: 20200118
